FAERS Safety Report 14175068 (Version 1)
Quarter: 2017Q4

REPORT INFORMATION
  Report Type: Spontaneous
  Country: CR (occurrence: CR)
  Receive Date: 20171109
  Receipt Date: 20171109
  Transmission Date: 20180321
  Serious: Yes (Other)
  Sender: FDA-Public Use
  Company Number: CR-BAYER-2017-211589

PATIENT
  Sex: Female

DRUGS (1)
  1. COPPERTONE TANNING DRY OIL SPF 4 [Suspect]
     Active Substance: HOMOSALATE\OXYBENZONE

REACTIONS (17)
  - Skin lesion [Not Recovered/Not Resolved]
  - Feeling hot [Unknown]
  - Infection susceptibility increased [Not Recovered/Not Resolved]
  - Application site injury [Not Recovered/Not Resolved]
  - Hypoaesthesia [Not Recovered/Not Resolved]
  - Muscle spasms [Not Recovered/Not Resolved]
  - Product expiration date issue [None]
  - Temperature intolerance [Not Recovered/Not Resolved]
  - Feeling hot [None]
  - Application site burn [Not Recovered/Not Resolved]
  - Application site pain [Not Recovered/Not Resolved]
  - Immobile [Not Recovered/Not Resolved]
  - Skin exfoliation [Not Recovered/Not Resolved]
  - Pain [Not Recovered/Not Resolved]
  - Scar [Not Recovered/Not Resolved]
  - Application site erythema [Not Recovered/Not Resolved]
  - Paraesthesia [Not Recovered/Not Resolved]
